FAERS Safety Report 20111462 (Version 1)
Quarter: 2021Q4

REPORT INFORMATION
  Report Type: Spontaneous
  Country: US (occurrence: US)
  Receive Date: 20211125
  Receipt Date: 20211125
  Transmission Date: 20220303
  Serious: No
  Sender: FDA-Public Use
  Company Number: MIQ-08042021-390

PATIENT

DRUGS (16)
  1. IVERMECTIN [Suspect]
     Active Substance: IVERMECTIN
     Indication: Rash
     Dosage: 6 DF, WEEKLY (12 TABLETS, 2 WEEKS)
     Route: 065
     Dates: start: 2021, end: 2021
  2. ADVAIR HFA [Concomitant]
     Active Substance: FLUTICASONE PROPIONATE\SALMETEROL XINAFOATE
     Indication: Asthma
     Dosage: 250 MG, BID
     Route: 055
  3. PREDNISONE [Concomitant]
     Active Substance: PREDNISONE
     Indication: Urticaria
     Dosage: 40 MG, QD
     Route: 065
     Dates: start: 2021, end: 2021
  4. PREDNISONE [Concomitant]
     Active Substance: PREDNISONE
     Indication: Rash
     Dosage: 10 MG, QD
     Route: 065
     Dates: start: 2021, end: 2021
  5. PREDNISONE [Concomitant]
     Active Substance: PREDNISONE
     Indication: Pruritus
     Dosage: 5 MG, TWO TABLETS A DAY
     Route: 048
     Dates: start: 2021, end: 2021
  6. PREDNISONE [Concomitant]
     Active Substance: PREDNISONE
     Indication: Swelling
     Dosage: 5 MG, QD
     Route: 065
     Dates: start: 2021, end: 2021
  7. PREDNISONE [Concomitant]
     Active Substance: PREDNISONE
     Indication: Haemorrhage
  8. PREDNISONE [Concomitant]
     Active Substance: PREDNISONE
     Indication: Skin tightness
  9. PREDNISONE [Concomitant]
     Active Substance: PREDNISONE
     Indication: Skin swelling
  10. CLOBETASOL                         /00337102/ [Concomitant]
     Indication: Urticaria
     Dosage: 5 MG, USED THREE DIFFERENT TIMES
     Route: 065
     Dates: start: 2021, end: 2021
  11. CLOBETASOL                         /00337102/ [Concomitant]
     Indication: Rash
  12. CLOBETASOL                         /00337102/ [Concomitant]
     Indication: Pruritus
  13. CLOBETASOL                         /00337102/ [Concomitant]
     Indication: Swelling
  14. CLOBETASOL                         /00337102/ [Concomitant]
     Indication: Haemorrhage
  15. CLOBETASOL                         /00337102/ [Concomitant]
     Indication: Skin tightness
  16. CLOBETASOL                         /00337102/ [Concomitant]
     Indication: Skin swelling

REACTIONS (6)
  - Heart rate increased [Recovered/Resolved]
  - Blood pressure decreased [Unknown]
  - Blood cholesterol increased [Unknown]
  - Fatigue [Unknown]
  - Asthenia [Unknown]
  - Drug ineffective for unapproved indication [Unknown]

NARRATIVE: CASE EVENT DATE: 20210101
